FAERS Safety Report 17923592 (Version 1)
Quarter: 2020Q2

REPORT INFORMATION
  Report Type: Spontaneous
  Country: US (occurrence: US)
  Receive Date: 20200622
  Receipt Date: 20200622
  Transmission Date: 20200714
  Serious: No
  Sender: FDA-Public Use
  Company Number: US-MYLANLABS-2020M1054674

PATIENT
  Sex: Female

DRUGS (1)
  1. ESTRADIOL TRANSDERMAL SYSTEM [Suspect]
     Active Substance: ESTRADIOL
     Indication: HORMONE REPLACEMENT THERAPY
     Dosage: 0.075 MILLIGRAM, QD
     Route: 062
     Dates: start: 20200504

REACTIONS (5)
  - Therapeutic product effect decreased [Unknown]
  - Product size issue [Unknown]
  - Hot flush [Unknown]
  - Product adhesion issue [Unknown]
  - Product label issue [Unknown]

NARRATIVE: CASE EVENT DATE: 202005
